FAERS Safety Report 7373283-6 (Version None)
Quarter: 2011Q1

REPORT INFORMATION
  Report Type: 
  Country: None (occurrence: None)
  Receive Date: 20110324
  Receipt Date: 20110314
  Transmission Date: 20110831
  Serious: Yes (Death, Hospitalization)
  Sender: FDA-Public Use
  Company Number: PT-CELGENEUS-130-21880-10101989

PATIENT
  Sex: Female
  Weight: 66 kg

DRUGS (15)
  1. SODIUM CITRATE [Concomitant]
     Route: 065
     Dates: start: 20101001, end: 20101001
  2. TRAMADOL HCL [Concomitant]
     Route: 065
     Dates: start: 20101001, end: 20101001
  3. REVLIMID [Suspect]
     Indication: MULTIPLE MYELOMA
     Dosage: 25 MILLIGRAM
     Route: 048
     Dates: start: 20100306, end: 20100930
  4. PAMIDRONATE DISODIUM [Concomitant]
     Indication: SUPPORTIVE CARE
     Dosage: 90 MILLIGRAM
     Route: 051
     Dates: start: 20100306, end: 20100917
  5. ARANESP [Concomitant]
     Dosage: 500 MICROGRAM
     Route: 058
     Dates: start: 20100820, end: 20100930
  6. SODIUM BICARBONATE [Concomitant]
     Indication: METABOLIC ACIDOSIS
     Route: 065
     Dates: start: 20101001
  7. SPASMOCANULASE [Concomitant]
     Route: 048
     Dates: start: 20100926, end: 20101001
  8. DEXAMETHASONE [Suspect]
     Dosage: 80 MILLIGRAM
     Route: 048
     Dates: start: 20100918, end: 20100930
  9. AAS [Concomitant]
     Dosage: 150 MILLIGRAM
     Route: 048
     Dates: start: 20100306, end: 20100930
  10. METOCLOPRAMIDE [Concomitant]
     Route: 051
     Dates: start: 20101001, end: 20101002
  11. FUROSEMIDE [Concomitant]
     Dosage: 40 MILLIGRAM
     Route: 048
     Dates: start: 20100825, end: 20100930
  12. POTASSIUM CHLORIDE [Concomitant]
     Route: 065
     Dates: start: 20101002, end: 20101002
  13. SODIUM LAURYL SULFATE [Concomitant]
     Route: 065
     Dates: start: 20101001, end: 20101001
  14. OMEPRAZOLE [Concomitant]
     Indication: PROPHYLAXIS
     Dosage: 20 MILLIGRAM
     Route: 048
     Dates: start: 20100306, end: 20101001
  15. DEXAMETHASONE [Suspect]
     Indication: MULTIPLE MYELOMA
     Dosage: 160 MILLIGRAM
     Route: 048
     Dates: start: 20100306, end: 20100917

REACTIONS (13)
  - SEPTIC SHOCK [None]
  - INTESTINAL OBSTRUCTION [None]
  - NEUTROPENIA [None]
  - BLOOD CREATINE INCREASED [None]
  - SOMNOLENCE [None]
  - ANAEMIA [None]
  - LIPOMA [None]
  - CONSTIPATION [None]
  - HYPERGLYCAEMIA [None]
  - OEDEMA PERIPHERAL [None]
  - ASTHENIA [None]
  - DIARRHOEA [None]
  - MUSCLE SPASMS [None]
